FAERS Safety Report 6362082-X (Version None)
Quarter: 2009Q3

REPORT INFORMATION
  Report Type: 
  Country: None (occurrence: None)
  Receive Date: 20090918
  Receipt Date: 20090909
  Transmission Date: 20100115
  Serious: Yes (Other)
  Sender: FDA-Public Use
  Company Number: PHHY2009BR38681

PATIENT
  Age: 56 Year
  Sex: Male

DRUGS (2)
  1. EXFORGE [Suspect]
     Dosage: 160/5 MG
  2. EXFORGE [Suspect]
     Dosage: 1 TABLET IN THE MORNING
     Dates: end: 20080301

REACTIONS (1)
  - PROSTATE CANCER [None]
